FAERS Safety Report 21811600 (Version 3)
Quarter: 2024Q1

REPORT INFORMATION
  Report Type: Spontaneous
  Country: US (occurrence: US)
  Receive Date: 20230103
  Receipt Date: 20240216
  Transmission Date: 20240409
  Serious: Yes (Hospitalization, Other)
  Sender: FDA-Public Use
  Company Number: US-MYLANLABS-2022M1142706

PATIENT
  Age: 9 Year
  Sex: Female

DRUGS (17)
  1. METHOTREXATE [Suspect]
     Active Substance: METHOTREXATE
     Indication: Type III immune complex mediated reaction
     Dosage: UNK UNK, QW (WEEKLY)
     Route: 065
  2. PREDNISONE [Suspect]
     Active Substance: PREDNISONE
     Indication: Type III immune complex mediated reaction
     Dosage: 100 MILLIGRAM/SQ. METER, QD
     Route: 065
  3. COLCHICINE [Suspect]
     Active Substance: COLCHICINE
     Indication: Type III immune complex mediated reaction
     Dosage: 0.3 MILLIGRAM, BID
     Route: 065
  4. DEXAMETHASONE [Suspect]
     Active Substance: DEXAMETHASONE
     Indication: Type III immune complex mediated reaction
     Dosage: 0.02 MILLIGRAM, BID
     Route: 065
  5. RITUXIMAB [Suspect]
     Active Substance: RITUXIMAB
     Indication: Type III immune complex mediated reaction
     Dosage: UNK (TRIANNUAL)
     Route: 065
  6. PRIVIGEN [Suspect]
     Active Substance: HUMAN IMMUNOGLOBULIN G
     Indication: Type III immune complex mediated reaction
     Dosage: 1 GRAM PER KILOGRAM, MONTHLY
     Route: 042
  7. INSULIN NOS [Suspect]
     Active Substance: INSULIN NOS
     Indication: Type 1 diabetes mellitus
     Dosage: 2.26 UNITS/KG/DAY
     Route: 065
  8. INSULIN NOS [Suspect]
     Active Substance: INSULIN NOS
     Dosage: UNK, DISCONTINUED FOLLOWED BY RE-INITIATION
     Route: 065
  9. INSULIN LISPRO [Concomitant]
     Active Substance: INSULIN LISPRO
     Indication: Type 1 diabetes mellitus
     Dosage: UNK (INJECTION)
     Route: 065
  10. INSULIN LISPRO [Concomitant]
     Active Substance: INSULIN LISPRO
     Dosage: UNK (PUMP; DESENSITISATION WITH INCREASE IN DOSAGES)
     Route: 042
  11. INSULIN LISPRO [Concomitant]
     Active Substance: INSULIN LISPRO
     Dosage: UNK, DISCONTINUATION FOLLOWED BY RE-INITIATION
     Route: 042
  12. INSULIN DETEMIR [Concomitant]
     Active Substance: INSULIN DETEMIR
     Indication: Type 1 diabetes mellitus
     Dosage: UNK
     Route: 065
  13. INSULIN DETEMIR [Concomitant]
     Active Substance: INSULIN DETEMIR
     Dosage: UNK, DISCONTINUED FOLLOWED BY RE-INITIATION
     Route: 065
  14. CETIRIZINE [Concomitant]
     Active Substance: CETIRIZINE HYDROCHLORIDE
     Indication: Type III immune complex mediated reaction
     Dosage: 10 MILLIGRAM, BID
     Route: 065
  15. RANITIDINE [Concomitant]
     Active Substance: RANITIDINE
     Indication: Type III immune complex mediated reaction
     Dosage: 150 MILLIGRAM, BID
     Route: 065
  16. MONTELUKAST [Concomitant]
     Active Substance: MONTELUKAST SODIUM
     Indication: Type III immune complex mediated reaction
     Dosage: UNK
     Route: 065
  17. TACROLIMUS [Concomitant]
     Active Substance: TACROLIMUS
     Indication: Type III immune complex mediated reaction
     Dosage: UNK
     Route: 065

REACTIONS (4)
  - Drug ineffective for unapproved indication [Unknown]
  - Hyperglycaemia [Recovering/Resolving]
  - Discomfort [Unknown]
  - Off label use [Unknown]
